FAERS Safety Report 4960004-7 (Version None)
Quarter: 2006Q1

REPORT INFORMATION
  Report Type: 
  Country: None (occurrence: None)
  Receive Date: 20060331
  Receipt Date: 20051229
  Transmission Date: 20060701
  Serious: Yes (Hospitalization, Disabling)
  Sender: FDA-Public Use
  Company Number: US-MERCK-0512USA04050

PATIENT
  Age: 82 Year
  Sex: Female
  Weight: 72 kg

DRUGS (1)
  1. VIOXX [Suspect]
     Indication: ARTHRITIS
     Route: 048
     Dates: start: 20020101, end: 20040901

REACTIONS (23)
  - ARTERIAL INSUFFICIENCY [None]
  - ARTERIOSCLEROSIS [None]
  - CANDIDIASIS [None]
  - CAROTID ARTERY STENOSIS [None]
  - CARPAL TUNNEL SYNDROME [None]
  - CEREBRAL ARTERIOSCLEROSIS [None]
  - CHEST PAIN [None]
  - GLAUCOMA [None]
  - HYPERCHOLESTEROLAEMIA [None]
  - HYPERLIPIDAEMIA [None]
  - HYPOAESTHESIA [None]
  - HYPOTHYROIDISM [None]
  - LUMBAR SPINAL STENOSIS [None]
  - NAIL HYPERTROPHY [None]
  - OSTEOPOROSIS [None]
  - PERIPHERAL VASCULAR DISORDER [None]
  - RADICULAR PAIN [None]
  - RECTAL HAEMORRHAGE [None]
  - THROMBOPHLEBITIS SUPERFICIAL [None]
  - TRANSIENT ISCHAEMIC ATTACK [None]
  - URINARY TRACT INFECTION [None]
  - VERTIGO [None]
  - WEIGHT DECREASED [None]
